FAERS Safety Report 5101511-6 (Version None)
Quarter: 2006Q3

REPORT INFORMATION
  Report Type: 
  Country: None (occurrence: None)
  Receive Date: 20060906
  Receipt Date: 20060824
  Transmission Date: 20061208
  Serious: Yes (Hospitalization, Congenital Anomaly, Other)
  Sender: FDA-Public Use
  Company Number: 2006104189

PATIENT
  Sex: Male

DRUGS (2)
  1. NEURONTIN [Suspect]
     Indication: EPILEPSY
     Dosage: ORAL
     Route: 048
  2. TEGRETOL [Concomitant]

REACTIONS (11)
  - ABDOMINAL HERNIA [None]
  - ASTHMA [None]
  - CARDIAC MURMUR [None]
  - CRYPTORCHISM [None]
  - DRUG EXPOSURE DURING PREGNANCY [None]
  - HEART VALVE INSUFFICIENCY [None]
  - HERNIA CONGENITAL [None]
  - LEARNING DISABILITY [None]
  - NERVOUS SYSTEM DISORDER [None]
  - PILONIDAL CYST [None]
  - VENTRICULAR SEPTAL DEFECT [None]
